FAERS Safety Report 25886783 (Version 1)
Quarter: 2025Q4

REPORT INFORMATION
  Report Type: Spontaneous
  Country: US (occurrence: None)
  Receive Date: 20251006
  Receipt Date: 20251006
  Transmission Date: 20260117
  Serious: Yes (Life-Threatening, Hospitalization, Other)
  Sender: FDA-CTU
  Company Number: None

PATIENT
  Age: 65 Year
  Sex: Male
  Weight: 112.05 kg

DRUGS (11)
  1. OPDIVO [Suspect]
     Active Substance: NIVOLUMAB
     Indication: Bladder transitional cell carcinoma
  2. MEDIPORT [Concomitant]
  3. DEVICE [Concomitant]
     Active Substance: DEVICE
  4. ATORVASTATIN (LIPIDS WELL CONTROLLED) [Concomitant]
  5. ESSIAC TEA [Concomitant]
  6. ITADORI TEA [Concomitant]
  7. BLACK CUMIN SEED OIL [Concomitant]
  8. OMEGAN 3 FISH OIL [Concomitant]
  9. ZINC [Concomitant]
     Active Substance: ZINC
  10. VITAMIN D [Concomitant]
     Active Substance: VITAMIN D NOS
  11. BERBERINE [Concomitant]
     Active Substance: BERBERINE

REACTIONS (4)
  - Diabetic ketoacidosis [None]
  - Autoimmune disorder [None]
  - Pancreatitis acute [None]
  - Type 1 diabetes mellitus [None]

NARRATIVE: CASE EVENT DATE: 20241122
